FAERS Safety Report 21847594 (Version 2)
Quarter: 2023Q1

REPORT INFORMATION
  Report Type: Spontaneous
  Country: US (occurrence: US)
  Receive Date: 20230111
  Receipt Date: 20230216
  Transmission Date: 20230417
  Serious: No
  Sender: FDA-Public Use
  Company Number: US-MMM-QCA94T5V

PATIENT
  Age: 59 Year
  Sex: Male

DRUGS (3)
  1. CABOTEGRAVIR [Suspect]
     Active Substance: CABOTEGRAVIR
     Indication: Product used for unknown indication
     Dosage: 3 ML
     Dates: start: 20221123
  2. CABOTEGRAVIR [Suspect]
     Active Substance: CABOTEGRAVIR
  3. CABOTEGRAVIR [Suspect]
     Active Substance: CABOTEGRAVIR

REACTIONS (5)
  - Injection site pain [Recovering/Resolving]
  - Muscle injury [Unknown]
  - Condition aggravated [Recovering/Resolving]
  - Muscle contusion [Unknown]
  - Pain [Unknown]

NARRATIVE: CASE EVENT DATE: 20221101
